FAERS Safety Report 17561919 (Version 1)
Quarter: 2020Q1

REPORT INFORMATION
  Report Type: Spontaneous
  Country: US (occurrence: US)
  Receive Date: 20200319
  Receipt Date: 20200319
  Transmission Date: 20200409
  Serious: Yes (Other)
  Sender: FDA-Public Use
  Company Number: US-PFIZER INC-2020118809

PATIENT
  Age: 38 Year
  Sex: Male

DRUGS (4)
  1. CIPROFLOXACIN. [Interacting]
     Active Substance: CIPROFLOXACIN
     Dosage: UNK
  2. DILTIAZEM HCL [Suspect]
     Active Substance: DILTIAZEM HYDROCHLORIDE
     Dosage: 5-10 MG/H 24 H INFUSION
     Route: 042
  3. TACROLIMUS. [Interacting]
     Active Substance: TACROLIMUS
     Dosage: 8 MG, 2X/DAY
  4. DILTIAZEM. [Interacting]
     Active Substance: DILTIAZEM
     Dosage: 30 MG/ 8 H
     Route: 048

REACTIONS (4)
  - Drug interaction [Unknown]
  - Delirium [Unknown]
  - Confusional state [Unknown]
  - Agitation [Unknown]
